FAERS Safety Report 24424227 (Version 3)
Quarter: 2025Q1

REPORT INFORMATION
  Report Type: Spontaneous
  Country: US (occurrence: US)
  Receive Date: 20241010
  Receipt Date: 20250127
  Transmission Date: 20250409
  Serious: No
  Sender: SANOFI AVENTIS
  Company Number: US-SA-2024SA291325

PATIENT
  Age: 12 Year
  Sex: Male
  Weight: 24.5 kg

DRUGS (2)
  1. DUPIXENT [Suspect]
     Active Substance: DUPILUMAB
     Indication: Dermatitis atopic
     Route: 058
  2. DUPIXENT [Suspect]
     Active Substance: DUPILUMAB
     Dosage: 200 MG, QOW
     Route: 058

REACTIONS (4)
  - Dermatitis atopic [Recovered/Resolved]
  - Intentional dose omission [Unknown]
  - Drug hypersensitivity [Unknown]
  - Dermatitis atopic [Unknown]
